FAERS Safety Report 24699565 (Version 1)
Quarter: 2024Q4

REPORT INFORMATION
  Report Type: Report from Study
  Country: CL (occurrence: CL)
  Receive Date: 20241205
  Receipt Date: 20241205
  Transmission Date: 20250115
  Serious: Yes (Disabling)
  Sender: ROCHE
  Company Number: CL-ROCHE-10000146026

PATIENT
  Age: 63 Year
  Sex: Female

DRUGS (1)
  1. HERCEPTIN [Suspect]
     Active Substance: TRASTUZUMAB
     Indication: Breast cancer stage IV
     Dosage: ON 22/NOV/2024, LAST DOSE RECEIVED WAS CYCLE 9,
     Route: 058
     Dates: start: 20240315

REACTIONS (3)
  - Metastases to central nervous system [Unknown]
  - Paraesthesia [Unknown]
  - Dysarthria [Unknown]

NARRATIVE: CASE EVENT DATE: 20241001
